FAERS Safety Report 17108080 (Version 1)
Quarter: 2019Q4

REPORT INFORMATION
  Report Type: Spontaneous
  Country: US (occurrence: US)
  Receive Date: 20191204
  Receipt Date: 20191204
  Transmission Date: 20200122
  Serious: No
  Sender: FDA-Public Use
  Company Number: US-UCBSA-2017043958

PATIENT
  Sex: Female

DRUGS (1)
  1. CIMZIA [Suspect]
     Active Substance: CERTOLIZUMAB PEGOL
     Indication: PRODUCT USED FOR UNKNOWN INDICATION
     Dosage: OVER A YEAR

REACTIONS (3)
  - Mass [Recovering/Resolving]
  - Haemorrhage [Recovering/Resolving]
  - Injection site discolouration [Recovering/Resolving]

NARRATIVE: CASE EVENT DATE: 20171024
